FAERS Safety Report 24376246 (Version 1)
Quarter: 2024Q3

REPORT INFORMATION
  Report Type: Spontaneous
  Country: US (occurrence: None)
  Receive Date: 20240927
  Receipt Date: 20240927
  Transmission Date: 20241017
  Serious: Yes (Death)
  Sender: Public
  Company Number: None

PATIENT
  Age: 61 Year
  Sex: Male
  Weight: 105 kg

DRUGS (12)
  1. LOKELMA [Suspect]
     Active Substance: SODIUM ZIRCONIUM CYCLOSILICATE
     Indication: Hyperkalaemia
     Dosage: FREQUENCY : DAILY;?
     Route: 048
     Dates: start: 20200924
  2. CINACALCET [Suspect]
     Active Substance: CINACALCET
     Indication: Chronic kidney disease
     Dates: start: 20200420
  3. LOSARTAN [Concomitant]
     Active Substance: LOSARTAN\LOSARTAN POTASSIUM
  4. OMEPRAZOLE [Concomitant]
     Active Substance: OMEPRAZOLE
  5. ALBUTEROL SULFATE [Concomitant]
     Active Substance: ALBUTEROL SULFATE
  6. AMLODIPINE BESYLATE [Concomitant]
     Active Substance: AMLODIPINE BESYLATE
  7. ALBUTEROL HFA INH [Concomitant]
  8. ATORVASTATIN [Concomitant]
     Active Substance: ATORVASTATIN
  9. GABAPENTIN [Concomitant]
     Active Substance: GABAPENTIN
  10. METOPROLOL SUCCINATE [Concomitant]
     Active Substance: METOPROLOL SUCCINATE
  11. RENVELA [Concomitant]
     Active Substance: SEVELAMER CARBONATE
  12. SERTRALINE [Concomitant]
     Active Substance: SERTRALINE HYDROCHLORIDE

REACTIONS (1)
  - Death [None]

NARRATIVE: CASE EVENT DATE: 20240912
